FAERS Safety Report 14282924 (Version 1)
Quarter: 2017Q4

REPORT INFORMATION
  Report Type: Spontaneous
  Country: US (occurrence: US)
  Receive Date: 20171213
  Receipt Date: 20171213
  Transmission Date: 20180321
  Serious: No
  Sender: FDA-Public Use
  Company Number: US-PERNIX THERAPEUTICS-2017PT000089

PATIENT
  Sex: Male
  Weight: 88 kg

DRUGS (1)
  1. HYDROCODONE BITARTRATE (MFR UNKNOWN) [Suspect]
     Active Substance: HYDROCODONE BITARTRATE
     Indication: PAIN

REACTIONS (5)
  - Drug ineffective [Unknown]
  - Abnormal behaviour [Unknown]
  - Drug dependence [Unknown]
  - Screaming [None]
  - Therapy change [None]
